FAERS Safety Report 4854853-3 (Version None)
Quarter: 2005Q4

REPORT INFORMATION
  Report Type: 
  Country: None (occurrence: None)
  Receive Date: 20051215
  Receipt Date: 20051205
  Transmission Date: 20060501
  Serious: Yes (Life-Threatening, Other)
  Sender: FDA-Public Use
  Company Number: GB-JNJFOC-20050804661

PATIENT
  Sex: Male

DRUGS (10)
  1. RISPERDAL [Suspect]
     Route: 048
  2. RISPERDAL [Suspect]
     Indication: SCHIZOPHRENIA
     Route: 048
  3. CYANOCOBALMIN [Concomitant]
     Indication: VITAMIN B12 DEFICIENCY
  4. LEVOTHYROXINE SODIUM [Concomitant]
     Indication: HYPOTHYROIDISM
  5. HUMAN INSULIN [Concomitant]
     Dosage: 42 UNITS AM, 22 UNITS PM
  6. CALCICHEW [Concomitant]
     Dosage: 1 DOSE = 1 TAB
  7. PROCYCLIDINE [Concomitant]
  8. OMEPRAZOLE [Concomitant]
  9. FYBOGEL [Concomitant]
     Indication: CONSTIPATION
     Dosage: TAKEN NOCTE
  10. SENNA [Concomitant]
     Dosage: TAKEN NOCTE

REACTIONS (2)
  - COUGH [None]
  - THROMBOCYTOPENIA [None]
